FAERS Safety Report 21955375 (Version 1)
Quarter: 2023Q1

REPORT INFORMATION
  Report Type: Spontaneous
  Country: CH (occurrence: CH)
  Receive Date: 20230206
  Receipt Date: 20230206
  Transmission Date: 20230418
  Serious: No
  Sender: FDA-Public Use
  Company Number: CH-SKF-000013

PATIENT
  Age: 38 Year
  Sex: Female

DRUGS (5)
  1. PREGABALIN [Suspect]
     Active Substance: PREGABALIN
     Indication: Muscle spasms
     Route: 065
  2. CARBAMAZEPINE [Suspect]
     Active Substance: CARBAMAZEPINE
     Indication: Muscle spasms
     Route: 065
  3. BACLOFEN [Suspect]
     Active Substance: BACLOFEN
     Indication: Muscle spasms
     Route: 065
  4. TOLPERISONE [Suspect]
     Active Substance: TOLPERISONE
     Indication: Muscle spasms
     Route: 065
  5. TOPIRAMATE [Suspect]
     Active Substance: TOPIRAMATE
     Indication: Muscle spasms
     Route: 065

REACTIONS (3)
  - Disease recurrence [Recovered/Resolved]
  - Neutropenia [Unknown]
  - Drug ineffective [Unknown]
